FAERS Safety Report 13645232 (Version 1)
Quarter: 2017Q2

REPORT INFORMATION
  Report Type: Spontaneous
  Country: US (occurrence: US)
  Receive Date: 20170612
  Receipt Date: 20170612
  Transmission Date: 20170830
  Serious: No
  Sender: FDA-Public Use
  Company Number: US-ROCHE-628928

PATIENT
  Age: 64 Year
  Sex: Male

DRUGS (6)
  1. XELODA [Suspect]
     Active Substance: CAPECITABINE
     Indication: RECTAL CANCER
     Dosage: DOSAGE FORM: 500 MG, 1500 MG BID ALTERNATING WITH 1000 MG BID FOR 2 WEEKS
     Route: 048
     Dates: start: 200809, end: 20091009
  2. OXYCODONE [Concomitant]
     Active Substance: OXYCODONE
     Route: 065
  3. XELODA [Suspect]
     Active Substance: CAPECITABINE
     Route: 048
  4. AMBIEN [Concomitant]
     Active Substance: ZOLPIDEM TARTRATE
     Route: 065
  5. COMPAZINE [Concomitant]
     Active Substance: PROCHLORPERAZINE MALEATE
     Route: 065
  6. IMODIUM [Concomitant]
     Active Substance: LOPERAMIDE HYDROCHLORIDE
     Route: 065

REACTIONS (11)
  - Diarrhoea [Unknown]
  - Alopecia [Unknown]
  - Hypoaesthesia [Recovering/Resolving]
  - Pruritus [Recovered/Resolved]
  - Skin mass [Recovered/Resolved]
  - Headache [Unknown]
  - Gingival disorder [Unknown]
  - Flatulence [Unknown]
  - Oral pain [Unknown]
  - Acne [Unknown]
  - Nephrolithiasis [Unknown]

NARRATIVE: CASE EVENT DATE: 200909
